FAERS Safety Report 21432538 (Version 5)
Quarter: 2023Q2

REPORT INFORMATION
  Report Type: Report from Study
  Country: US (occurrence: US)
  Receive Date: 20221010
  Receipt Date: 20230621
  Transmission Date: 20230721
  Serious: Yes (Other)
  Sender: FDA-Public Use
  Company Number: US-ABBVIE-4143865

PATIENT
  Age: 76 Year
  Sex: Female

DRUGS (4)
  1. RINVOQ [Suspect]
     Active Substance: UPADACITINIB
     Indication: Rheumatoid arthritis
     Route: 048
     Dates: start: 20220422
  2. RINVOQ [Suspect]
     Active Substance: UPADACITINIB
     Indication: Rheumatoid arthritis
     Route: 048
     Dates: start: 20220422
  3. RINVOQ [Suspect]
     Active Substance: UPADACITINIB
     Indication: Rheumatoid arthritis
     Dosage: ONSET DATE FOR EVENT LEG SWELLING WAS REPORTED AS 2022 AS IT MENTIONS IN NARRATIVE AS LATELY
     Route: 048
     Dates: start: 20220422
  4. RINVOQ [Suspect]
     Active Substance: UPADACITINIB
     Indication: Rheumatoid arthritis
     Route: 048
     Dates: start: 20220422

REACTIONS (10)
  - Arterial occlusive disease [Not Recovered/Not Resolved]
  - Ingrowing nail [Not Recovered/Not Resolved]
  - Arthralgia [Recovering/Resolving]
  - Tinnitus [Not Recovered/Not Resolved]
  - Blood potassium increased [Unknown]
  - Peripheral swelling [Not Recovered/Not Resolved]
  - Ligament injury [Unknown]
  - Ligament sprain [Unknown]
  - Pyrexia [Recovered/Resolved]
  - Joint swelling [Recovering/Resolving]

NARRATIVE: CASE EVENT DATE: 20230306
